FAERS Safety Report 19739724 (Version 4)
Quarter: 2022Q2

REPORT INFORMATION
  Report Type: Spontaneous
  Country: JP (occurrence: JP)
  Receive Date: 20210823
  Receipt Date: 20220425
  Transmission Date: 20220720
  Serious: Yes (Death, Hospitalization, Other)
  Sender: FDA-Public Use
  Company Number: JP-BRISTOL-MYERS SQUIBB COMPANY-BMS-2021-083819

PATIENT
  Age: 70 Year
  Sex: Female

DRUGS (1)
  1. OPDIVO [Suspect]
     Active Substance: NIVOLUMAB
     Indication: Oesophageal carcinoma
     Dosage: 240 MILLIGRAM
     Route: 041
     Dates: start: 20210323, end: 20210323

REACTIONS (4)
  - Mucosal inflammation [Not Recovered/Not Resolved]
  - Myelodysplastic syndrome [Unknown]
  - Chronic graft versus host disease [Fatal]
  - Condition aggravated [Unknown]

NARRATIVE: CASE EVENT DATE: 20210409
